FAERS Safety Report 4393330-3 (Version None)
Quarter: 2004Q3

REPORT INFORMATION
  Report Type: 
  Country: None (occurrence: None)
  Receive Date: 20040701
  Receipt Date: 20040622
  Transmission Date: 20050211
  Serious: Yes (Other)
  Sender: FDA-Public Use
  Company Number: 2004220044JP

PATIENT
  Age: 32 Year
  Sex: Female

DRUGS (4)
  1. NASANYL(NAFARELIN ACETATE) SPRAY [Suspect]
     Indication: ENDOMETRIOSIS
     Dosage: BID, NASAL
     Route: 045
     Dates: start: 20040401, end: 20040617
  2. ALESION (EPINASTINE HYDROCHLORIDE) [Suspect]
     Dosage: ORAL
     Route: 048
     Dates: start: 20040603, end: 20040616
  3. CEFCAPENE PIVOXIL HYDROCHLORIDE [Concomitant]
  4. LYSOZYME HYDROCHLORIDE [Concomitant]

REACTIONS (3)
  - GINGIVAL BLEEDING [None]
  - PLATELET AGGREGATION DECREASED [None]
  - TOOTH EXTRACTION [None]
